FAERS Safety Report 9013416 (Version 1)
Quarter: 2013Q1

REPORT INFORMATION
  Report Type: Spontaneous
  Country: FR (occurrence: FR)
  Receive Date: 20130114
  Receipt Date: 20130114
  Transmission Date: 20140127
  Serious: Yes (Other)
  Sender: FDA-Public Use
  Company Number: FR-NOVOPROD-353531

PATIENT
  Age: 15 Year
  Sex: Male
  Weight: 54 kg

DRUGS (5)
  1. NORDITROPIN [Suspect]
     Indication: BODY HEIGHT BELOW NORMAL
     Dosage: 1.7 MG, QD
     Route: 058
     Dates: start: 20090603, end: 20120530
  2. EPIDUO [Concomitant]
     Dosage: UNK
  3. ERY                                /00020901/ [Concomitant]
     Dosage: UNK
     Dates: start: 20111215, end: 20120115
  4. ISOTRETINOIN [Concomitant]
     Dosage: UNK
  5. LYSOCLINE [Concomitant]
     Dosage: UNK

REACTIONS (1)
  - Vertigo [Recovering/Resolving]
